FAERS Safety Report 8593162-6 (Version None)
Quarter: 2012Q3

REPORT INFORMATION
  Report Type: 
  Country: None (occurrence: None)
  Receive Date: 20120814
  Receipt Date: 20120727
  Transmission Date: 20120928
  Serious: No
  Sender: FDA-Public Use
  Company Number: US-BAYER-2012-076874

PATIENT
  Age: 74 Year
  Sex: Male
  Weight: 72.562 kg

DRUGS (3)
  1. ALEVE (CAPLET) [Suspect]
     Indication: ANALGESIC THERAPY
     Dosage: UNK, PRN
     Route: 048
  2. LISINOPRIL [Concomitant]
  3. METFORMIN HCL [Concomitant]

REACTIONS (1)
  - THROAT IRRITATION [None]
